FAERS Safety Report 21082749 (Version 2)
Quarter: 2022Q3

REPORT INFORMATION
  Report Type: Spontaneous
  Country: TW (occurrence: TW)
  Receive Date: 20220714
  Receipt Date: 20220719
  Transmission Date: 20221026
  Serious: Yes (Other)
  Sender: FDA-Public Use
  Company Number: TW-NOVARTISPH-NVSC2022TW157664

PATIENT
  Age: 59 Year
  Sex: Male

DRUGS (5)
  1. GLYCOPYRRONIUM\INDACATEROL [Suspect]
     Active Substance: GLYCOPYRRONIUM\INDACATEROL
     Indication: Product used for unknown indication
     Dosage: UNK
     Route: 055
     Dates: start: 20200604
  2. EVEROLIMUS [Suspect]
     Active Substance: EVEROLIMUS
     Indication: Product used for unknown indication
     Dosage: 0.5 MG, Q12H
     Route: 048
  3. TACROLIMUS [Concomitant]
     Active Substance: TACROLIMUS
     Indication: Heart transplant
     Dosage: 1 MG, Q12H
     Route: 048
  4. ALLOPURINOL [Concomitant]
     Active Substance: ALLOPURINOL
     Indication: Gout
     Route: 065
  5. INSULIN ASPART [Concomitant]
     Active Substance: INSULIN ASPART
     Indication: Product used for unknown indication
     Dosage: 20 DOSAGE FORM, BID
     Route: 065

REACTIONS (14)
  - Haematuria [Unknown]
  - COVID-19 [Unknown]
  - Urinary tract infection [Unknown]
  - Left atrial volume increased [Unknown]
  - Pyuria [Unknown]
  - Left ventricular dysfunction [Unknown]
  - Stroke volume increased [Unknown]
  - Dysuria [Unknown]
  - Dyspnoea [Unknown]
  - Rhinorrhoea [Unknown]
  - Leukocytosis [Unknown]
  - Blood fibrinogen [Unknown]
  - Wheezing [Unknown]
  - Pyrexia [Unknown]

NARRATIVE: CASE EVENT DATE: 20200604
